FAERS Safety Report 17051868 (Version 1)
Quarter: 2019Q4

REPORT INFORMATION
  Report Type: Report from Study
  Country: BR (occurrence: BR)
  Receive Date: 20191120
  Receipt Date: 20191120
  Transmission Date: 20200122
  Serious: Yes (Other)
  Sender: FDA-Public Use
  Company Number: PHHY2019BR165689

PATIENT
  Age: 46 Year
  Sex: Female

DRUGS (1)
  1. COSENTYX [Suspect]
     Active Substance: SECUKINUMAB
     Indication: PRODUCT USED FOR UNKNOWN INDICATION
     Dosage: 300 MG, UNK
     Route: 065
     Dates: start: 20181217

REACTIONS (20)
  - Oropharyngeal pain [Recovering/Resolving]
  - Decreased appetite [Recovering/Resolving]
  - Dysphonia [Recovering/Resolving]
  - Fatigue [Unknown]
  - Catarrh [Unknown]
  - Pneumonia [Recovering/Resolving]
  - Pain [Unknown]
  - Arthralgia [Unknown]
  - Cough [Unknown]
  - Joint swelling [Unknown]
  - Chest pain [Recovering/Resolving]
  - Muscle rigidity [Unknown]
  - Weight increased [Unknown]
  - Headache [Unknown]
  - Weight decreased [Unknown]
  - Overweight [Unknown]
  - Back pain [Recovering/Resolving]
  - Gait disturbance [Unknown]
  - Influenza [Recovering/Resolving]
  - Nasopharyngitis [Unknown]

NARRATIVE: CASE EVENT DATE: 2018
